FAERS Safety Report 10887455 (Version 1)
Quarter: 2015Q1

REPORT INFORMATION
  Report Type: Spontaneous
  Country: US (occurrence: US)
  Receive Date: 20150304
  Receipt Date: 20150304
  Transmission Date: 20150721
  Serious: No
  Sender: FDA-Public Use
  Company Number: US-AMGEN-USASP2014036110

PATIENT
  Age: 57 Year
  Sex: Male
  Weight: 79.37 kg

DRUGS (4)
  1. ENBREL [Suspect]
     Active Substance: ETANERCEPT
     Indication: PRODUCT USED FOR UNKNOWN INDICATION
     Dosage: 50 MG, QWK
     Route: 058
  2. SERTRALINE [Concomitant]
     Active Substance: SERTRALINE HYDROCHLORIDE
     Dosage: 100 MG, UNK
  3. OMEGA 3                            /01333901/ [Concomitant]
     Dosage: 1000 MG, UNK
  4. CALCIUM MAGNESIUM                  /01412301/ [Concomitant]
     Dosage: UNK

REACTIONS (4)
  - Fall [Unknown]
  - Gait disturbance [Unknown]
  - Orthosis user [Unknown]
  - Ligament sprain [Unknown]

NARRATIVE: CASE EVENT DATE: 20140417
